FAERS Safety Report 11178484 (Version 4)
Quarter: 2016Q2

REPORT INFORMATION
  Report Type: Spontaneous
  Country: FR (occurrence: FR)
  Receive Date: 20150610
  Receipt Date: 20160531
  Transmission Date: 20160815
  Serious: Yes (Hospitalization)
  Sender: FDA-Public Use
  Company Number: FR-B.I. PHARMACEUTICALS,INC./RIDGEFIELD-2015-BI-30448FF

PATIENT
  Age: 64 Year
  Sex: Male
  Weight: 88 kg

DRUGS (1)
  1. PRADAXA [Suspect]
     Active Substance: DABIGATRAN ETEXILATE MESYLATE
     Indication: ATRIAL THROMBOSIS
     Dosage: 300 MG
     Route: 048
     Dates: start: 20150130, end: 20150508

REACTIONS (2)
  - Peripheral artery occlusion [Recovered/Resolved]
  - Peripheral artery thrombosis [Recovered/Resolved]

NARRATIVE: CASE EVENT DATE: 20150508
